FAERS Safety Report 18763051 (Version 1)
Quarter: 2021Q1

REPORT INFORMATION
  Report Type: Spontaneous
  Country: US (occurrence: US)
  Receive Date: 20210120
  Receipt Date: 20210120
  Transmission Date: 20210419
  Serious: No
  Sender: FDA-Public Use
  Company Number: None

PATIENT
  Age: 66 Year
  Sex: Male
  Weight: 88.52 kg

DRUGS (1)
  1. OLANZAPINE. [Suspect]
     Active Substance: OLANZAPINE
     Dates: start: 20201112, end: 20201117

REACTIONS (3)
  - Orthostatic hypotension [None]
  - Atrioventricular block [None]
  - Sinus bradycardia [None]

NARRATIVE: CASE EVENT DATE: 20201113
